FAERS Safety Report 7098895-9 (Version None)
Quarter: 2010Q4

REPORT INFORMATION
  Report Type: 
  Country: None (occurrence: None)
  Receive Date: 20101112
  Receipt Date: 20101001
  Transmission Date: 20110411
  Serious: Yes (Hospitalization, Other)
  Sender: FDA-Public Use
  Company Number: US-AMGEN-KDL443598

PATIENT

DRUGS (2)
  1. PROCRIT [Suspect]
     Dosage: 20000 IU, UNK
     Route: 058
  2. INTERFERON [Concomitant]
     Dosage: UNK UNK, UNK
     Route: 042

REACTIONS (2)
  - CARDIOVASCULAR DISORDER [None]
  - CAROTID ARTERY OCCLUSION [None]
